FAERS Safety Report 14346066 (Version 2)
Quarter: 2018Q1

REPORT INFORMATION
  Report Type: Spontaneous
  Country: FR (occurrence: FR)
  Receive Date: 20180103
  Receipt Date: 20180207
  Transmission Date: 20180509
  Serious: Yes (Hospitalization)
  Sender: FDA-Public Use
  Company Number: FR-MERCK KGAA-2038214

PATIENT
  Age: 71 Year
  Sex: Female
  Weight: 78 kg

DRUGS (1)
  1. NOVOTHYROX [Suspect]
     Active Substance: LEVOTHYROXINE SODIUM
     Indication: HYPOTHYROIDISM
     Route: 048
     Dates: start: 20170516, end: 20170614

REACTIONS (7)
  - Fatigue [Recovering/Resolving]
  - Loss of consciousness [Recovering/Resolving]
  - Amnesia [Recovering/Resolving]
  - Fall [Recovering/Resolving]
  - Blood thyroid stimulating hormone [Unknown]
  - Vertigo [Recovering/Resolving]
  - Muscle spasms [Recovering/Resolving]

NARRATIVE: CASE EVENT DATE: 20170614
